FAERS Safety Report 23862407 (Version 2)
Quarter: 2024Q3

REPORT INFORMATION
  Report Type: Report from Study
  Country: ES (occurrence: ES)
  Receive Date: 20240516
  Receipt Date: 20240813
  Transmission Date: 20241017
  Serious: Yes (Death, Hospitalization, Disabling)
  Sender: BOEHRINGER INGELHEIM
  Company Number: ES-BoehringerIngelheim-2023-BI-247147

PATIENT
  Age: 61 Year
  Sex: Male
  Weight: 70 kg

DRUGS (6)
  1. OFEV [Suspect]
     Active Substance: NINTEDANIB
     Indication: Idiopathic pulmonary fibrosis
     Route: 048
     Dates: start: 20230321
  2. DESVENLAFAXINE [Concomitant]
     Active Substance: DESVENLAFAXINE
     Indication: Depression
     Dosage: 150MG/24H
     Route: 048
  3. SILODOSIN [Concomitant]
     Active Substance: SILODOSIN
     Indication: Benign prostatic hyperplasia
     Dosage: 4MG
     Route: 048
  4. OMEPRAZOLE [Concomitant]
     Active Substance: OMEPRAZOLE
     Indication: Product used for unknown indication
     Dosage: 20MG
     Route: 048
  5. LEVOTHYROXINE SODIUM [Concomitant]
     Active Substance: LEVOTHYROXINE SODIUM
     Indication: Hypothyroidism
     Dosage: 25MG
     Route: 048
  6. OLODATEROL HYDROCHLORIDE\TIOTROPIUM BROMIDE MONOHYDRATE [Concomitant]
     Active Substance: OLODATEROL HYDROCHLORIDE\TIOTROPIUM BROMIDE MONOHYDRATE
     Indication: Product used for unknown indication
     Dosage: 2,5 MCG
     Route: 055

REACTIONS (7)
  - Idiopathic pulmonary fibrosis [Fatal]
  - Fatigue [Not Recovered/Not Resolved]
  - Procedural pneumothorax [Recovered/Resolved]
  - Decreased appetite [Not Recovered/Not Resolved]
  - Cyst [Recovered/Resolved]
  - Postoperative wound infection [Recovered/Resolved]
  - Diarrhoea [Recovered/Resolved]

NARRATIVE: CASE EVENT DATE: 20230101
